FAERS Safety Report 7613432 (Version 3)
Quarter: 2020Q3

REPORT INFORMATION
  Report Type: Report from Study
  Country: US (occurrence: US)
  Receive Date: 20100930
  Receipt Date: 20101105
  Transmission Date: 20201104
  Serious: Yes (Hospitalization, Disabling)
  Sender: FDA-Public Use
  Company Number: US-JNJFOC-20100907038

PATIENT
  Age: 69 Year
  Sex: Female
  Weight: 85.9 kg

DRUGS (12)
  1. PREVACID [Suspect]
     Active Substance: LANSOPRAZOLE
     Indication: UNEVALUABLE EVENT
     Route: 048
  2. VICODIN [Concomitant]
     Active Substance: ACETAMINOPHEN\HYDROCODONE BITARTRATE
     Indication: PAIN
  3. GOLIMUMAB [Suspect]
     Active Substance: GOLIMUMAB
     Indication: COLITIS ULCERATIVE
     Route: 058
  4. DIOVAN [Concomitant]
     Active Substance: VALSARTAN
     Indication: UNEVALUABLE EVENT
     Route: 048
  5. LOVASTATIN. [Concomitant]
     Active Substance: LOVASTATIN
     Indication: UNEVALUABLE EVENT
  6. LEVOXYL [Suspect]
     Active Substance: LEVOTHYROXINE SODIUM
     Indication: UNEVALUABLE EVENT
  7. EFFEXOR [Concomitant]
     Active Substance: VENLAFAXINE HYDROCHLORIDE
     Indication: UNEVALUABLE EVENT
     Route: 048
  8. COMPAZINE [Concomitant]
     Active Substance: PROCHLORPERAZINE MALEATE
     Indication: NAUSEA
  9. MESALAMINE. [Suspect]
     Active Substance: MESALAMINE
     Indication: COLITIS ULCERATIVE
  10. PLACEBO [Suspect]
     Active Substance: UNSPECIFIED INGREDIENT
     Route: 058
  11. FIORICET [Concomitant]
     Active Substance: ACETAMINOPHEN\BUTALBITAL\CAFFEINE
     Indication: HEADACHE
     Route: 048
  12. ZOFRAN [Concomitant]
     Active Substance: ONDANSETRON HYDROCHLORIDE
     Indication: UNEVALUABLE EVENT
     Route: 048

REACTIONS (20)
  - Nausea [Recovered/Resolved]
  - Candida infection [Recovered/Resolved]
  - Metamyelocyte count increased [None]
  - Platelet count increased [None]
  - Hypokalaemia [None]
  - Dehydration [Recovered/Resolved]
  - Malnutrition [Recovered/Resolved]
  - Dizziness postural [None]
  - Blood glucose increased [None]
  - Hypophosphataemia [None]
  - Blood iron decreased [None]
  - Swelling [None]
  - Blood calcium decreased [None]
  - Herpes simplex [Recovered/Resolved]
  - Asthenia [None]
  - Blood creatinine decreased [None]
  - Hypomagnesaemia [None]
  - Oropharyngeal pain [None]
  - Blood sodium decreased [None]
  - Hypophagia [None]

NARRATIVE: CASE EVENT DATE: 20100906
